FAERS Safety Report 4651652-2 (Version None)
Quarter: 2005Q2

REPORT INFORMATION
  Report Type: 
  Country: None (occurrence: None)
  Receive Date: 20050404
  Receipt Date: 20041102
  Transmission Date: 20051028
  Serious: No
  Sender: FDA-Public Use
  Company Number: USA041183024

PATIENT
  Age: 37 Year
  Sex: Male

DRUGS (4)
  1. ZYPREXA [Suspect]
     Dosage: 20 MG DAY
  2. CYMBALTA [Suspect]
     Dosage: 60 MG DAY
     Dates: start: 20041026
  3. RITALIN [Concomitant]
  4. NEURONTIN [Concomitant]

REACTIONS (3)
  - DRUG INEFFECTIVE [None]
  - DYSARTHRIA [None]
  - EXTRAPYRAMIDAL DISORDER [None]
